FAERS Safety Report 17196675 (Version 1)
Quarter: 2019Q4

REPORT INFORMATION
  Report Type: Spontaneous
  Country: CN (occurrence: CN)
  Receive Date: 20191224
  Receipt Date: 20191224
  Transmission Date: 20200122
  Serious: Yes (Life-Threatening, Hospitalization, Other)
  Sender: FDA-Public Use
  Company Number: CN-PFIZER INC-2019550848

PATIENT
  Age: 53 Year
  Sex: Male
  Weight: 69 kg

DRUGS (7)
  1. DYNASTAT [Suspect]
     Active Substance: PARECOXIB SODIUM
     Indication: POSTOPERATIVE ANALGESIA
     Dosage: 40 MG, 1X/DAY
     Route: 040
     Dates: start: 20191129, end: 20191202
  2. CEFUROXIME SODIUM. [Concomitant]
     Active Substance: CEFUROXIME SODIUM
     Indication: THERAPEUTIC PROCEDURE
     Dosage: 1.5 G, 2X/DAY
     Route: 041
     Dates: start: 20191129, end: 20191202
  3. CELEBREX [Suspect]
     Active Substance: CELECOXIB
     Indication: POSTOPERATIVE ANALGESIA
     Dosage: 200 MG, 1X/DAY
     Route: 048
     Dates: start: 20191202, end: 20191203
  4. MANNITOL. [Concomitant]
     Active Substance: MANNITOL
     Indication: DEHYDRATION
     Dosage: 125 ML, 2X/DAY
     Route: 041
     Dates: start: 20191129, end: 20191202
  5. SOLU-MEDROL [Suspect]
     Active Substance: METHYLPREDNISOLONE SODIUM SUCCINATE
     Indication: ANTIINFLAMMATORY THERAPY
     Dosage: 80 MG, 2X/DAY
     Route: 041
     Dates: start: 20191129, end: 20191202
  6. CARBAZOCHROME SODIUM SULFONATE [Concomitant]
     Active Substance: CARBAZOCHROME SODIUM SULFONATE
     Indication: HAEMOSTASIS
     Dosage: 80 MG, 1X/DAY
     Route: 041
     Dates: start: 20191129, end: 20191202
  7. LOSEC [OMEPRAZOLE SODIUM] [Concomitant]
     Active Substance: OMEPRAZOLE SODIUM
     Indication: THERAPEUTIC PROCEDURE
     Dosage: 40 MG, 1X/DAY
     Route: 040
     Dates: start: 20191129, end: 20191202

REACTIONS (3)
  - Gastrointestinal haemorrhage [Recovering/Resolving]
  - Shock haemorrhagic [Recovering/Resolving]
  - Abdominal pain [Recovering/Resolving]

NARRATIVE: CASE EVENT DATE: 20191203
